FAERS Safety Report 23149790 (Version 5)
Quarter: 2024Q1

REPORT INFORMATION
  Report Type: Report from Study
  Country: CA (occurrence: CA)
  Receive Date: 20231106
  Receipt Date: 20240228
  Transmission Date: 20240410
  Serious: Yes (Other)
  Sender: FDA-Public Use
  Company Number: CA-SANDOZ-SDZ2023CA048494

PATIENT
  Sex: Male

DRUGS (2)
  1. HYRIMOZ [Suspect]
     Active Substance: ADALIMUMAB-ADAZ
     Indication: Ankylosing spondylitis
     Dosage: 40 MG
     Route: 058
     Dates: start: 20230807
  2. HYRIMOZ [Suspect]
     Active Substance: ADALIMUMAB-ADAZ
     Dosage: UNK
     Route: 065
     Dates: start: 20240106

REACTIONS (11)
  - Ankylosing spondylitis [Unknown]
  - Pain [Unknown]
  - Dysstasia [Unknown]
  - Arthralgia [Unknown]
  - Intervertebral disc protrusion [Unknown]
  - COVID-19 [Unknown]
  - Drug ineffective [Unknown]
  - Therapy cessation [Unknown]
  - Insomnia [Unknown]
  - Osteoarthritis [Unknown]
  - Back pain [Unknown]
